FAERS Safety Report 8542704-5 (Version None)
Quarter: 2012Q3

REPORT INFORMATION
  Report Type: 
  Country: None (occurrence: None)
  Receive Date: 20120727
  Receipt Date: 20120717
  Transmission Date: 20120928
  Serious: Yes (Death, Hospitalization)
  Sender: FDA-Public Use
  Company Number: US-BIOGENIDEC-2012BI023488

PATIENT
  Age: 61 Year
  Sex: Female

DRUGS (2)
  1. TYSABRI [Suspect]
     Route: 042
     Dates: start: 20111116, end: 20120511
  2. TYSABRI [Suspect]
     Indication: MULTIPLE SCLEROSIS
     Route: 042
     Dates: start: 20061009, end: 20070522

REACTIONS (9)
  - PULMONARY HYPERTENSION [None]
  - MAJOR DEPRESSION [None]
  - PNEUMONIA [None]
  - URINARY TRACT INFECTION ENTEROCOCCAL [None]
  - RHABDOMYOLYSIS [None]
  - URINARY TRACT INFECTION PSEUDOMONAL [None]
  - CHRONIC OBSTRUCTIVE PULMONARY DISEASE [None]
  - CARDIO-RESPIRATORY ARREST [None]
  - MULTIPLE SCLEROSIS [None]
